FAERS Safety Report 4894889-X (Version None)
Quarter: 2006Q1

REPORT INFORMATION
  Report Type: 
  Country: None (occurrence: None)
  Receive Date: 20060130
  Receipt Date: 20050131
  Transmission Date: 20060701
  Serious: No
  Sender: FDA-Public Use
  Company Number: US-BRISTOL-MYERS SQUIBB COMPANY-12842928

PATIENT
  Age: 71 Year
  Sex: Female
  Weight: 77 kg

DRUGS (4)
  1. GLUCOPHAGE [Suspect]
     Indication: DIABETES MELLITUS
     Route: 048
  2. PRAVACHOL [Concomitant]
  3. MONOPRIL [Concomitant]
  4. DILTIAZEM HCL [Concomitant]

REACTIONS (5)
  - CHEST PAIN [None]
  - HEADACHE [None]
  - INCORRECT DOSE ADMINISTERED [None]
  - PAIN IN EXTREMITY [None]
  - RENAL PAIN [None]
